FAERS Safety Report 4287878-X (Version None)
Quarter: 2004Q1

REPORT INFORMATION
  Report Type: 
  Country: None (occurrence: None)
  Receive Date: 20040209
  Receipt Date: 20031020
  Transmission Date: 20041129
  Serious: No
  Sender: FDA-Public Use
  Company Number: US-GLAXOSMITHKLINE-A0430934A

PATIENT
  Age: 95 Year
  Sex: Female

DRUGS (6)
  1. PAXIL [Suspect]
     Indication: DEPRESSION
     Dosage: 25MG UNKNOWN
     Route: 048
  2. LISINOPRIL [Concomitant]
  3. ALPRAZOLAM [Concomitant]
  4. PROCARDIA [Concomitant]
  5. IMDUR [Concomitant]
  6. COUMADIN [Concomitant]

REACTIONS (2)
  - DIZZINESS [None]
  - HEADACHE [None]
